FAERS Safety Report 4775337-7 (Version None)
Quarter: 2005Q3

REPORT INFORMATION
  Report Type: 
  Country: None (occurrence: None)
  Receive Date: 20050922
  Receipt Date: 20050527
  Transmission Date: 20060218
  Serious: Yes (Life-Threatening, Hospitalization)
  Sender: FDA-Public Use
  Company Number: FR-BOEHRINGER INGELHEIM PHARMACEUTICALS, INC.-2005-FF-00370FF

PATIENT
  Sex: Female
  Weight: 85 kg

DRUGS (3)
  1. MICARDIS HCT [Suspect]
     Indication: ESSENTIAL HYPERTENSION
     Route: 048
     Dates: end: 20050429
  2. RILMENIDINE [Concomitant]
     Indication: ESSENTIAL HYPERTENSION
     Route: 048
     Dates: end: 20050429
  3. OGAST [Concomitant]
     Route: 048
     Dates: end: 20050429

REACTIONS (5)
  - ACUTE RESPIRATORY DISTRESS SYNDROME [None]
  - CONJUNCTIVAL OEDEMA [None]
  - FACE OEDEMA [None]
  - LYMPHOEDEMA [None]
  - TONGUE OEDEMA [None]
